FAERS Safety Report 8017967-5 (Version None)
Quarter: 2011Q4

REPORT INFORMATION
  Report Type: 
  Country: None (occurrence: None)
  Receive Date: 20111228
  Receipt Date: 20111215
  Transmission Date: 20120403
  Serious: Yes (Hospitalization)
  Sender: FDA-Public Use
  Company Number: USA/USA/11/0022164

PATIENT
  Age: 50 Year
  Sex: Male
  Weight: 71.6683 kg

DRUGS (1)
  1. OMEPRAZOLE MAGNESIUM [Suspect]
     Indication: GASTRIC PH DECREASED
     Dosage: 20.6 MG, 1 IN 1D, ORAL
     Route: 048
     Dates: start: 20111122, end: 20111128

REACTIONS (6)
  - HAEMATOCHEZIA [None]
  - ABDOMINAL PAIN UPPER [None]
  - NEOPLASM MALIGNANT [None]
  - VOMITING [None]
  - GASTRIC PH DECREASED [None]
  - ABDOMINAL DISTENSION [None]
